FAERS Safety Report 15154888 (Version 1)
Quarter: 2018Q3

REPORT INFORMATION
  Report Type: Spontaneous
  Country: US (occurrence: US)
  Receive Date: 20180717
  Receipt Date: 20180717
  Transmission Date: 20181010
  Serious: No
  Sender: FDA-Public Use
  Company Number: US-TARO-2017TAR00986

PATIENT
  Age: 7 Year
  Sex: Female
  Weight: 29.25 kg

DRUGS (1)
  1. CETIRIZINE HCL SYRUP 1MG/ML RX [Suspect]
     Active Substance: CETIRIZINE HYDROCHLORIDE
     Indication: MULTIPLE ALLERGIES
     Dosage: 12.5 MG, ONCE
     Dates: start: 20171114, end: 20171114

REACTIONS (2)
  - Rhinorrhoea [Unknown]
  - Accidental overdose [Recovered/Resolved]

NARRATIVE: CASE EVENT DATE: 20171114
